FAERS Safety Report 21368559 (Version 3)
Quarter: 2023Q1

REPORT INFORMATION
  Report Type: Report from Study
  Country: US (occurrence: US)
  Receive Date: 20220923
  Receipt Date: 20230110
  Transmission Date: 20230418
  Serious: Yes (Other)
  Sender: FDA-Public Use
  Company Number: US-TAKEDA-2022TUS056185

PATIENT
  Age: 56 Year
  Sex: Female
  Weight: 94 kg

DRUGS (23)
  1. LANADELUMAB [Suspect]
     Active Substance: LANADELUMAB
     Indication: Angioedema
     Dosage: 300 MILLIGRAM, Q2WEEKS
     Route: 058
     Dates: start: 20220729
  2. LANADELUMAB [Suspect]
     Active Substance: LANADELUMAB
     Indication: Immune system disorder
  3. TERBINAFINE HYDROCHLORIDE [Concomitant]
     Active Substance: TERBINAFINE HYDROCHLORIDE
  4. METOPROLOL SUCCINATE [Concomitant]
     Active Substance: METOPROLOL SUCCINATE
  5. LIOTHYRONINE SODIUM [Concomitant]
     Active Substance: LIOTHYRONINE SODIUM
  6. GLYCOPYRROLATE [Concomitant]
     Active Substance: GLYCOPYRROLATE
  7. SYNTHROID [Concomitant]
     Active Substance: LEVOTHYROXINE SODIUM
  8. TRAZODONE HCL [Concomitant]
     Active Substance: TRAZODONE HYDROCHLORIDE
  9. METFORMIN HYDROCHLORIDE [Concomitant]
     Active Substance: METFORMIN HYDROCHLORIDE
  10. HYDROCHLOROTHIAZIDE [Concomitant]
     Active Substance: HYDROCHLOROTHIAZIDE
  11. FLUCONAZOLE [Concomitant]
     Active Substance: FLUCONAZOLE
  12. MELOXICAM [Concomitant]
     Active Substance: MELOXICAM
  13. GABAPENTIN [Concomitant]
     Active Substance: GABAPENTIN
  14. ICATIBANT [Concomitant]
     Active Substance: ICATIBANT ACETATE
  15. MAGNESIUM [Concomitant]
     Active Substance: MAGNESIUM
  16. CRESTOR [Concomitant]
     Active Substance: ROSUVASTATIN CALCIUM
  17. LOSARTAN POTASSIUM [Concomitant]
     Active Substance: LOSARTAN POTASSIUM
  18. ZETIA [Concomitant]
     Active Substance: EZETIMIBE
  19. CEPHALEXIN [Concomitant]
     Active Substance: CEPHALEXIN
  20. CYMBALTA [Concomitant]
     Active Substance: DULOXETINE HYDROCHLORIDE
  21. LOSARTAN [Concomitant]
     Active Substance: LOSARTAN
  22. LIOTHYRONINE [Concomitant]
     Active Substance: LIOTHYRONINE
  23. TRAZODONE [Concomitant]
     Active Substance: TRAZODONE HYDROCHLORIDE

REACTIONS (9)
  - Loss of consciousness [Unknown]
  - Fall [Unknown]
  - Wound [Unknown]
  - Accident [Unknown]
  - Head injury [Unknown]
  - Amnesia [Unknown]
  - Injection site pain [Unknown]
  - Concussion [Unknown]
  - Pyrexia [Unknown]

NARRATIVE: CASE EVENT DATE: 20220826
